FAERS Safety Report 5577524-7 (Version None)
Quarter: 2007Q4

REPORT INFORMATION
  Report Type: 
  Country: None (occurrence: None)
  Receive Date: 20071228
  Receipt Date: 20071218
  Transmission Date: 20080405
  Serious: Yes (Other)
  Sender: FDA-Public Use
  Company Number: JP-PFIZER INC-2007108021

PATIENT
  Sex: Female

DRUGS (4)
  1. DETRUSITOL [Suspect]
     Indication: URINARY RETENTION
     Dosage: DAILY DOSE:6MG
     Route: 048
  2. LASIX [Concomitant]
  3. MUCOSTA [Concomitant]
  4. VESICARE [Concomitant]

REACTIONS (4)
  - ANOREXIA [None]
  - CONSTIPATION [None]
  - DIARRHOEA [None]
  - URINARY RETENTION [None]
